FAERS Safety Report 10915086 (Version 1)
Quarter: 2015Q1

REPORT INFORMATION
  Report Type: Spontaneous
  Country: ES (occurrence: ES)
  Receive Date: 20150315
  Receipt Date: 20150315
  Transmission Date: 20150721
  Serious: Yes (Other)
  Sender: FDA-Public Use
  Company Number: ES-009507513-1503ESP005704

PATIENT
  Age: 47 Year
  Sex: Female

DRUGS (21)
  1. ORFIDAL [Suspect]
     Active Substance: LORAZEPAM
     Indication: DEPRESSION
  2. ZARELIS [Suspect]
     Active Substance: VENLAFAXINE HYDROCHLORIDE
     Indication: DEPRESSION
     Dosage: 75 MG DAILY
  3. TRILEPTAL [Suspect]
     Active Substance: OXCARBAZEPINE
     Indication: DEPRESSION
  4. RISPERDAL [Suspect]
     Active Substance: RISPERIDONE
     Indication: DEPRESSION
  5. SEROQUEL [Suspect]
     Active Substance: QUETIAPINE FUMARATE
     Indication: DEPRESSION
     Dosage: 50 MG DAILY
  6. SINOGAN (LEVOMEPROMAZINE MALEATE) [Suspect]
     Active Substance: LEVOMEPROMAZINE
     Indication: DEPRESSION
  7. INVEGA SUSTENNA [Suspect]
     Active Substance: PALIPERIDONE PALMITATE
     Indication: DEPRESSION
  8. CYMBALTA [Suspect]
     Active Substance: DULOXETINE HYDROCHLORIDE
     Indication: DEPRESSION
  9. ANAFRANIL [Suspect]
     Active Substance: CLOMIPRAMINE HYDROCHLORIDE
     Indication: DEPRESSION
     Dosage: 75 MG DAILY
  10. DEPAKINE [Suspect]
     Active Substance: VALPROATE SODIUM
     Indication: DEPRESSION
     Dosage: 200 MG DAILY
  11. AMITRIPTYLINE HYDROCHLORIDE. [Suspect]
     Active Substance: AMITRIPTYLINE HYDROCHLORIDE
     Indication: DEPRESSION
     Dosage: 75 MG DAILY
  12. ZYPREXA [Suspect]
     Active Substance: OLANZAPINE
     Indication: DEPRESSION
     Dosage: 2.5 MG DAILY
  13. ROCOZ /01270902/ [Suspect]
     Active Substance: QUETIAPINE FUMARATE
     Indication: DEPRESSION
     Dosage: 100 MG DAILY
  14. VANDRAL [Suspect]
     Active Substance: VENLAFAXINE HYDROCHLORIDE
     Indication: DEPRESSION
     Dosage: 75 MG DAILY
  15. LUDIOMIL [Suspect]
     Active Substance: MAPROTILINE HYDROCHLORIDE
     Indication: DEPRESSION
     Dosage: 75 MG DAILY
  16. ABILIFY [Suspect]
     Active Substance: ARIPIPRAZOLE
     Indication: DEPRESSION
     Dosage: 5MG DAILY
  17. GABAPENTIN. [Suspect]
     Active Substance: GABAPENTIN
     Indication: DEPRESSION
     Dosage: 300 MG DAILY
  18. ANAFRANIL [Suspect]
     Active Substance: CLOMIPRAMINE HYDROCHLORIDE
     Dosage: 10 MG DAILY
  19. VANDRAL [Suspect]
     Active Substance: VENLAFAXINE HYDROCHLORIDE
     Dosage: 10 MG DAILY
  20. SOLIAN [Suspect]
     Active Substance: AMISULPRIDE
     Indication: DEPRESSION
  21. TRAZODONE HYDROCHLORIDE. [Suspect]
     Active Substance: TRAZODONE HYDROCHLORIDE
     Indication: DEPRESSION

REACTIONS (6)
  - Visual impairment [Unknown]
  - Vision blurred [Unknown]
  - Conjunctivitis [None]
  - Constipation [Unknown]
  - Intestinal obstruction [Unknown]
  - Psoriasis [Unknown]
